FAERS Safety Report 7137104-9 (Version None)
Quarter: 2010Q4

REPORT INFORMATION
  Report Type: 
  Country: None (occurrence: None)
  Receive Date: 20101206
  Receipt Date: 20100825
  Transmission Date: 20110411
  Serious: No
  Sender: FDA-Public Use
  Company Number: JP-JNJFOC-20101200632

PATIENT
  Sex: Male

DRUGS (12)
  1. DUROTEP MT [Suspect]
     Indication: PAIN
     Route: 062
  2. MORPHINE HYDROCHLORIDE [Concomitant]
     Indication: PAIN
     Route: 048
  3. MORPHINE HYDROCHLORIDE [Concomitant]
     Route: 048
  4. MORPHINE HYDROCHLORIDE [Concomitant]
     Route: 048
  5. MORPHINE HYDROCHLORIDE [Concomitant]
     Route: 048
  6. MORPHINE HYDROCHLORIDE [Concomitant]
     Route: 048
  7. BONALON [Concomitant]
     Route: 048
  8. ONEALFA [Concomitant]
     Route: 048
  9. NORTRIPTYLINE HCL [Concomitant]
     Route: 048
  10. MELDEST [Concomitant]
     Route: 048
  11. FLURBIPROFEN [Concomitant]
  12. LIDOCAINE [Concomitant]

REACTIONS (1)
  - DRUG PRESCRIBING ERROR [None]
